FAERS Safety Report 21935016 (Version 2)
Quarter: 2023Q1

REPORT INFORMATION
  Report Type: Spontaneous
  Country: US (occurrence: US)
  Receive Date: 20230201
  Receipt Date: 20230203
  Transmission Date: 20230418
  Serious: No
  Sender: FDA-Public Use
  Company Number: US-ELI_LILLY_AND_COMPANY-US202301005833

PATIENT
  Sex: Male

DRUGS (1)
  1. OLUMIANT [Suspect]
     Active Substance: BARICITINIB
     Indication: Alopecia areata
     Dosage: 4 MG, DAILY
     Route: 065
     Dates: start: 202212

REACTIONS (7)
  - Cough [Unknown]
  - Chest discomfort [Unknown]
  - Productive cough [Unknown]
  - Wheezing [Unknown]
  - Pulmonary congestion [Unknown]
  - Anxiety [Unknown]
  - Influenza [Unknown]
